FAERS Safety Report 6400762-8 (Version None)
Quarter: 2009Q4

REPORT INFORMATION
  Report Type: 
  Country: None (occurrence: None)
  Receive Date: 20091008
  Receipt Date: 20090923
  Transmission Date: 20100525
  Serious: Yes (Death, Hospitalization, Other)
  Sender: FDA-Public Use
  Company Number: THQ2009A04405

PATIENT
  Age: 71 Year
  Sex: Female

DRUGS (7)
  1. LANSOPRAZOLE [Suspect]
     Indication: DRUG USE FOR UNKNOWN INDICATION
     Dosage: 60 MG (30 MG,2 IN 1 D), PER ORAL; PER ORAL
     Route: 048
  2. CAPECITABINE [Suspect]
     Indication: GASTRIC CANCER
     Dosage: PER ORAL
     Route: 048
  3. ETAMSILATE [Suspect]
     Indication: GASTROINTESTINAL HAEMORRHAGE
     Dosage: 2000 FIG 1600 MG,4 IN 1 D)
  4. METFORMIN HCL [Suspect]
     Indication: DRUG USE FOR UNKNOWN INDICATION
     Dosage: 500 MG (500 MG,1 IN 1 D)
  5. ACETAMINOPHEN [Suspect]
     Indication: DRUG USE FOR UNKNOWN INDICATION
     Dosage: 4 GM (1 GM,4 IN 1 D)
  6. TRANEXAMIC ACID [Suspect]
     Indication: GASTROINTESTINAL HAEMORRHAGE
     Dosage: 3 GM (1 GM, 3 IN 1 D)  PER ORAL
  7. UNIPHYL [Suspect]
     Indication: DRUG USE FOR UNKNOWN INDICATION
     Dosage: 400 MFG (200 MG,2 IN 1 D)

REACTIONS (6)
  - ANAEMIA [None]
  - MALIGNANT NEOPLASM PROGRESSION [None]
  - METASTASES TO LIVER [None]
  - METASTASES TO LUNG [None]
  - RECTAL HAEMORRHAGE [None]
  - SEPSIS [None]
